FAERS Safety Report 12579871 (Version 3)
Quarter: 2016Q3

REPORT INFORMATION
  Report Type: Spontaneous
  Country: JP (occurrence: JP)
  Receive Date: 20160721
  Receipt Date: 20160815
  Transmission Date: 20161109
  Serious: Yes (Death, Life-Threatening, Hospitalization)
  Sender: FDA-Public Use
  Company Number: PHJP2016JP019647

PATIENT
  Age: 79 Year
  Sex: Male
  Weight: 67 kg

DRUGS (6)
  1. URSO [Concomitant]
     Active Substance: URSODIOL
     Indication: PRODUCT USED FOR UNKNOWN INDICATION
     Dosage: 100 MG, TID
     Route: 048
     Dates: start: 20160407, end: 20160626
  2. AMARYL [Concomitant]
     Active Substance: GLIMEPIRIDE
     Indication: PRODUCT USED FOR UNKNOWN INDICATION
     Dosage: 1 MG, TID
     Route: 048
  3. ACTOS [Concomitant]
     Active Substance: PIOGLITAZONE HYDROCHLORIDE
     Indication: PRODUCT USED FOR UNKNOWN INDICATION
     Dosage: 15 MG, QD
     Route: 048
  4. VOTRIENT [Suspect]
     Active Substance: PAZOPANIB HYDROCHLORIDE
     Indication: RENAL CELL CARCINOMA
     Dosage: 200 MG, BID
     Route: 048
     Dates: start: 20160407, end: 20160703
  5. PROHEPARUM [Concomitant]
     Active Substance: CHOLINE BITARTRATE\CYSTEINE\INOSITOL\MAMMAL LIVER
     Indication: PRODUCT USED FOR UNKNOWN INDICATION
     Dosage: 1 DF, TID
     Route: 048
     Dates: start: 20160407, end: 20160501
  6. ATELEC [Concomitant]
     Active Substance: CILNIDIPINE
     Indication: PRODUCT USED FOR UNKNOWN INDICATION
     Dosage: 10 MG, QD
     Route: 048

REACTIONS (16)
  - Cerebral infarction [Fatal]
  - Disseminated intravascular coagulation [Fatal]
  - Diarrhoea [Fatal]
  - Bacterial infection [Fatal]
  - Platelet count decreased [Fatal]
  - Dysarthria [Fatal]
  - Pyrexia [Fatal]
  - Purpura [Fatal]
  - Petechiae [Fatal]
  - Anaemia [Fatal]
  - Gastrointestinal haemorrhage [Fatal]
  - Urinary incontinence [Fatal]
  - Interstitial lung disease [Fatal]
  - Dyspnoea [Fatal]
  - Multiple organ dysfunction syndrome [Fatal]
  - Pneumonia bacterial [Fatal]

NARRATIVE: CASE EVENT DATE: 20160630
